FAERS Safety Report 9057067 (Version 3)
Quarter: 2013Q1

REPORT INFORMATION
  Report Type: Spontaneous
  Country: DE (occurrence: DE)
  Receive Date: 20130131
  Receipt Date: 20130228
  Transmission Date: 20140127
  Serious: No
  Sender: FDA-Public Use
  Company Number: DE-PFIZER INC-2013031083

PATIENT
  Sex: Female

DRUGS (1)
  1. VIAGRA [Suspect]
     Indication: SCLERODERMA
     Dosage: 25 MG, UNK

REACTIONS (1)
  - Off label use [Unknown]
